FAERS Safety Report 8059750-0 (Version None)
Quarter: 2012Q1

REPORT INFORMATION
  Report Type: 
  Country: None (occurrence: None)
  Receive Date: 20120120
  Receipt Date: 20120116
  Transmission Date: 20120608
  Serious: Yes (Death, Other)
  Sender: FDA-Public Use
  Company Number: PHHY2012PL004176

PATIENT
  Age: 56 Year
  Sex: Male

DRUGS (8)
  1. DAUNORUBICIN HCL [Suspect]
  2. AZACITIDINE [Suspect]
  3. NILOTINIB [Suspect]
  4. INTERFERON ALFA [Suspect]
  5. IMATINIB MESYLATE [Suspect]
  6. HYDROXYUREA [Suspect]
  7. DASATINIB [Suspect]
  8. ARABINOSIDE [Suspect]
     Dosage: 3 + 7 INDUCTION REGIMEN

REACTIONS (3)
  - INFECTION [None]
  - ACUTE MYELOID LEUKAEMIA [None]
  - THERAPEUTIC RESPONSE DECREASED [None]
